FAERS Safety Report 4535887-5 (Version None)
Quarter: 2004Q4

REPORT INFORMATION
  Report Type: 
  Country: None (occurrence: None)
  Receive Date: 20041223
  Receipt Date: 20041028
  Transmission Date: 20050328
  Serious: Yes (Hospitalization)
  Sender: FDA-Public Use
  Company Number: PHFR2004GB04037

PATIENT
  Age: 53 Year
  Sex: Female

DRUGS (2)
  1. NEORAL [Suspect]
     Indication: PSORIASIS
     Dosage: 100MG/DAY
     Route: 065
     Dates: start: 20040928
  2. NEORAL [Suspect]
     Dosage: 200MG/DAY

REACTIONS (9)
  - BALANCE DISORDER [None]
  - HEADACHE [None]
  - HYPERTENSION [None]
  - HYPERTENSIVE ENCEPHALOPATHY [None]
  - INTRACRANIAL PRESSURE INCREASED [None]
  - LEUKOENCEPHALOPATHY [None]
  - NODDING OF HEAD [None]
  - TREMOR [None]
  - VISION BLURRED [None]
